FAERS Safety Report 4884131-8 (Version None)
Quarter: 2005Q4

REPORT INFORMATION
  Report Type: 
  Country: None (occurrence: None)
  Receive Date: 20051201
  Receipt Date: 20050907
  Transmission Date: 20060501
  Serious: No
  Sender: FDA-Public Use
  Company Number: 2005PV001897

PATIENT
  Age: 56 Year
  Sex: Female
  Weight: 81.6475 kg

DRUGS (10)
  1. BYETTA [Suspect]
     Indication: DIABETES MELLITUS NON-INSULIN-DEPENDENT
     Dosage: 5 MCG; BID; SC
     Route: 058
     Dates: start: 20050827
  2. METFORMIN [Concomitant]
  3. METFORMIN [Concomitant]
  4. STARLIX [Concomitant]
  5. LANTUS [Concomitant]
  6. AVANDIA [Concomitant]
  7. LISINOPRIL [Concomitant]
  8. METHADONE HCL [Concomitant]
  9. DILTIAZEM HCL [Concomitant]
  10. LEXAPRO [Concomitant]

REACTIONS (4)
  - DECREASED APPETITE [None]
  - DRUG EFFECT DECREASED [None]
  - EARLY SATIETY [None]
  - ENERGY INCREASED [None]
